FAERS Safety Report 9060012 (Version 5)
Quarter: 2013Q2

REPORT INFORMATION
  Report Type: Report from Study
  Country: US (occurrence: US)
  Receive Date: 20130212
  Receipt Date: 20130426
  Transmission Date: 20140414
  Serious: Yes (Other)
  Sender: FDA-Public Use
  Company Number: US-AMGEN-USACT2013007269

PATIENT
  Age: 14 Year
  Sex: Male
  Weight: 28.8 kg

DRUGS (1)
  1. ETANERCEPT [Suspect]
     Indication: PSORIASIS
     Dosage: 20 ML, QWK
     Route: 030
     Dates: start: 20061009

REACTIONS (1)
  - Haematuria [Not Recovered/Not Resolved]
